FAERS Safety Report 8565573-6 (Version None)
Quarter: 2012Q3

REPORT INFORMATION
  Report Type: 
  Country: None (occurrence: None)
  Receive Date: 20120803
  Receipt Date: 20120731
  Transmission Date: 20120928
  Serious: Yes (Disabling)
  Sender: FDA-Public Use
  Company Number: US-PFIZER INC-2012073682

PATIENT
  Sex: Male
  Weight: 88.889 kg

DRUGS (6)
  1. ZOLOFT [Suspect]
     Dosage: 200 MG, DAILY
     Dates: end: 20120501
  2. VENLAFAXINE HCL [Suspect]
     Indication: DEPRESSION
     Dosage: 150 MG, 3X/DAY
     Route: 048
     Dates: start: 20120501
  3. SERTRALINE [Suspect]
     Indication: DEPRESSION
     Dosage: 100 MG, 2X/DAY
     Route: 048
     Dates: start: 20120501
  4. WELLBUTRIN XL [Concomitant]
     Indication: DEPRESSION
     Dosage: UNK
  5. EFFEXOR XR [Suspect]
     Indication: DEPRESSION
     Dosage: 150 MG, 3X/DAY
     Dates: start: 19900101, end: 20120501
  6. KLONOPIN [Concomitant]
     Indication: DEPRESSION
     Dosage: UNK

REACTIONS (3)
  - ACCIDENT AT WORK [None]
  - BACK INJURY [None]
  - DRUG INEFFECTIVE [None]
